FAERS Safety Report 23910140 (Version 1)
Quarter: 2024Q2

REPORT INFORMATION
  Report Type: Spontaneous
  Country: FR (occurrence: FR)
  Receive Date: 20240528
  Receipt Date: 20240528
  Transmission Date: 20240716
  Serious: Yes (Life-Threatening, Hospitalization, Other)
  Sender: FDA-Public Use
  Company Number: FR-BRISTOL-MYERS SQUIBB COMPANY-2024-083954

PATIENT
  Age: 94 Year
  Sex: Male

DRUGS (4)
  1. ELIQUIS [Suspect]
     Active Substance: APIXABAN
     Indication: Atrial fibrillation
     Dates: start: 2016
  2. ELIQUIS [Suspect]
     Active Substance: APIXABAN
  3. HYDROCHLOROTHIAZIDE\IRBESARTAN [Concomitant]
     Active Substance: HYDROCHLOROTHIAZIDE\IRBESARTAN
     Indication: Hypertension
     Dosage: 150MG/12.5MG: 1 TABLET IN THE MORNING
  4. ESOMEPRAZOLE [Concomitant]
     Active Substance: ESOMEPRAZOLE
     Indication: Prophylaxis against gastrointestinal ulcer

REACTIONS (8)
  - Gastrointestinal haemorrhage [Recovered/Resolved]
  - Gastric ulcer [Recovered/Resolved]
  - Off label use [Unknown]
  - Platelet count decreased [Unknown]
  - Cerebrovascular accident [Unknown]
  - Vitreous haemorrhage [Unknown]
  - Vitreous detachment [Unknown]
  - Visual impairment [Unknown]

NARRATIVE: CASE EVENT DATE: 20240201
